FAERS Safety Report 8093922-4 (Version None)
Quarter: 2012Q1

REPORT INFORMATION
  Report Type: 
  Country: None (occurrence: None)
  Receive Date: 20120130
  Receipt Date: 20120124
  Transmission Date: 20120608
  Serious: Yes (Life-Threatening, Other)
  Sender: FDA-Public Use
  Company Number: IT-ELI_LILLY_AND_COMPANY-IT201201004995

PATIENT
  Sex: Male

DRUGS (8)
  1. LASIX [Concomitant]
     Dosage: 75 MG, UNK
     Route: 048
  2. PANTOPRAZOLE [Concomitant]
     Dosage: 40 MG, UNK
     Route: 048
  3. BISOPROLOL FUMARATE [Concomitant]
     Dosage: 3.75 MG, UNK
     Route: 048
  4. PLAVIX [Concomitant]
     Dosage: 75 MG, UNK
     Route: 048
  5. CORDARONE [Concomitant]
     Dosage: 200 MG, UNK
     Route: 048
  6. ZYPREXA [Suspect]
     Indication: MANIA
     Dosage: 5 MG, QD
     Route: 048
     Dates: start: 20120109, end: 20120112
  7. ATORVASTATIN CALCIUM [Concomitant]
     Dosage: 40 MG, UNK
     Route: 048
  8. ALLOPURINOL [Concomitant]
     Dosage: 150 MG, UNK
     Route: 048

REACTIONS (3)
  - COMA [None]
  - HYPOTENSION [None]
  - MYOCARDIAL INFARCTION [None]
